FAERS Safety Report 15862812 (Version 2)
Quarter: 2019Q3

REPORT INFORMATION
  Report Type: Spontaneous
  Country: US (occurrence: US)
  Receive Date: 20190124
  Receipt Date: 20190819
  Transmission Date: 20191004
  Serious: No
  Sender: FDA-Public Use
  Company Number: US-MYLANLABS-2019M1003249

PATIENT
  Sex: Female
  Weight: 51 kg

DRUGS (1)
  1. TRIAMTERENE AND HYDROCHLOROTHIAZIDE TABLETS [Suspect]
     Active Substance: HYDROCHLOROTHIAZIDE\TRIAMTERENE
     Indication: HYPERTENSION
     Dosage: 37 MILLIGRAM
     Route: 048

REACTIONS (1)
  - Blood pressure increased [Not Recovered/Not Resolved]
